FAERS Safety Report 12083453 (Version 1)
Quarter: 2016Q1

REPORT INFORMATION
  Report Type: Spontaneous
  Country: US (occurrence: None)
  Receive Date: 20160216
  Receipt Date: 20160216
  Transmission Date: 20160526
  Serious: No
  Sender: FDA-Public Use
  Company Number: None

PATIENT
  Age: 65 Year
  Sex: Female
  Weight: 70.31 kg

DRUGS (8)
  1. PENTASSA [Concomitant]
  2. HYDROCHLOROTHYAZIDE [Concomitant]
     Active Substance: HYDROCHLOROTHIAZIDE
  3. VITAMIN B12 [Concomitant]
     Active Substance: CYANOCOBALAMIN
  4. BELSOMRA [Suspect]
     Active Substance: SUVOREXANT
     Indication: INITIAL INSOMNIA
     Dosage: ONE PILL 20 MINUTTES BEFORE, AT BEDTIME, TAKEN BY MOUTH
     Dates: start: 20160209
  5. DULOXETINE. [Concomitant]
     Active Substance: DULOXETINE
  6. CALCIUM [Concomitant]
     Active Substance: CALCIUM
  7. ENTOCORT [Concomitant]
     Active Substance: BUDESONIDE
  8. VITAMIN D [Concomitant]
     Active Substance: CHOLECALCIFEROL

REACTIONS (4)
  - Drug ineffective [None]
  - Agitation [None]
  - Restless legs syndrome [None]
  - Restlessness [None]

NARRATIVE: CASE EVENT DATE: 20160209
